FAERS Safety Report 5282798-6 (Version None)
Quarter: 2007Q2

REPORT INFORMATION
  Report Type: 
  Country: None (occurrence: None)
  Receive Date: 20070402
  Receipt Date: 20070319
  Transmission Date: 20071010
  Serious: Yes (Other)
  Sender: FDA-Public Use
  Company Number: US-JNJFOC-20070105796

PATIENT
  Sex: Female
  Weight: 120.66 kg

DRUGS (17)
  1. REMICADE [Suspect]
     Dosage: INTERMITTENTLY
     Route: 042
  2. REMICADE [Suspect]
     Indication: RHEUMATOID ARTHRITIS
     Dosage: INTERMITTENTLY
     Route: 042
  3. CALCIUM [Concomitant]
  4. PREDNISONE [Concomitant]
  5. METHOTREXATE [Concomitant]
     Indication: RHEUMATOID ARTHRITIS
  6. FOLIC ACID [Concomitant]
  7. CELEBREX [Concomitant]
  8. ALTACE [Concomitant]
  9. DARVOCET [Concomitant]
  10. HYDROCHLOROTHIAZIDE [Concomitant]
  11. LIPITOR [Concomitant]
  12. PREMARIN [Concomitant]
  13. LOMOTIL [Concomitant]
  14. TEMAZEPAM [Concomitant]
  15. MUCINEX [Concomitant]
  16. ZOLOFT [Concomitant]
  17. ADVANDAMET [Concomitant]

REACTIONS (1)
  - HISTOPLASMOSIS [None]
